FAERS Safety Report 23303997 (Version 1)
Quarter: 2023Q4

REPORT INFORMATION
  Report Type: Spontaneous
  Country: DE (occurrence: DE)
  Receive Date: 20231215
  Receipt Date: 20231215
  Transmission Date: 20240110
  Serious: Yes (Other)
  Sender: FDA-Public Use
  Company Number: DE-BEH-2023166389

PATIENT
  Age: 11 Year
  Sex: Female
  Weight: 34 kg

DRUGS (3)
  1. HAEMATE P [Suspect]
     Active Substance: ANTIHEMOPHILIC FACTOR HUMAN
     Indication: Von Willebrand^s disease
     Dosage: UNK
     Route: 042
  2. HAEMATE P [Suspect]
     Active Substance: ANTIHEMOPHILIC FACTOR HUMAN
     Indication: Prophylaxis
  3. FERROUS GLYCINE SULFATE [Concomitant]
     Active Substance: FERROUS GLYCINE SULFATE
     Indication: Iron deficiency
     Dosage: UNK, BID
     Route: 048
     Dates: start: 20230202

REACTIONS (4)
  - Drug ineffective [Unknown]
  - Von Willebrand^s factor inhibition [Unknown]
  - Pain in extremity [Recovered/Resolved]
  - Product use issue [Recovered/Resolved]
